FAERS Safety Report 16348285 (Version 2)
Quarter: 2019Q2

REPORT INFORMATION
  Report Type: Spontaneous
  Country: FR (occurrence: FR)
  Receive Date: 20190523
  Receipt Date: 20190530
  Transmission Date: 20190711
  Serious: Yes (Hospitalization)
  Sender: FDA-Public Use
  Company Number: FR-MYLANLABS-2019M1047429

PATIENT
  Age: 64 Year
  Sex: Male

DRUGS (11)
  1. ACTISKENAN [Suspect]
     Active Substance: MORPHINE SULFATE
     Indication: ANALGESIC INTERVENTION SUPPORTIVE THERAPY
     Dosage: 10 MG SI BESOIN, 40 MG PAR JOUR
     Route: 048
     Dates: start: 20180914
  2. LOVENOX [Suspect]
     Active Substance: ENOXAPARIN SODIUM
     Indication: THROMBOSIS PROPHYLAXIS
     Dosage: 4 000 UI ? 20H
     Route: 058
     Dates: start: 20180914
  3. SKENAN [Suspect]
     Active Substance: MORPHINE SULFATE
     Indication: ANALGESIC INTERVENTION SUPPORTIVE THERAPY
     Dosage: 30 MG MATIN ET SOIR
     Route: 048
     Dates: start: 20180914
  4. MORPHINE AGUETTANT [Suspect]
     Active Substance: MORPHINE HYDROCHLORIDE
     Indication: ANALGESIC INTERVENTION SUPPORTIVE THERAPY
     Dosage: 30 MG PAR 24H BOLUS DE 3 MG (MAX 3/JOUR)
     Route: 042
     Dates: start: 20180920, end: 20180927
  5. NEFOPAM MYLAN 20 MG/2 ML, SOLUTION INJECTABLE [Suspect]
     Active Substance: NEFOPAM HYDROCHLORIDE
     Indication: ANALGESIC INTERVENTION SUPPORTIVE THERAPY
     Dosage: 20 MG SI DOULEUR NON SOULAG?E PAR PARAC?TAMOL, 4 MAX PAR JOUR, ENVIRON 2 PRISES PAR JOUR PAR LE PATI
     Route: 042
     Dates: start: 20180914, end: 20180920
  6. MACROGOL 4000 MYLAN 10 G, POUDRE POUR SOLUTION BUVABLE EN SACHET-DOSE [Suspect]
     Active Substance: POLYETHYLENE GLYCOL 4000
     Indication: CONSTIPATION
     Dosage: 2 SACHETS DE 13 G MATNI ET MIDI
     Route: 048
     Dates: start: 20180915
  7. DOLIPRANE [Suspect]
     Active Substance: ACETAMINOPHEN
     Indication: ANALGESIC INTERVENTION SUPPORTIVE THERAPY
     Dosage: 4 GRAM, QD
     Route: 048
     Dates: start: 20180914
  8. NEBIVOLOL SANDOZ [Concomitant]
     Active Substance: NEBIVOLOL
     Indication: HYPERTENSION
     Dosage: LE MATIN
     Route: 048
  9. CEFTRIAXONE MYLAN [Suspect]
     Active Substance: CEFTRIAXONE
     Indication: PYELONEPHRITIS ACUTE
     Dosage: 1 GRAM, QD
     Route: 042
     Dates: start: 20180914, end: 20180917
  10. GABAPENTINE ARROW [Suspect]
     Active Substance: GABAPENTIN
     Indication: NEURALGIA
     Dosage: 900 MILLIGRAM, QD
     Route: 048
     Dates: start: 20180916, end: 20180920
  11. AMOXICILLINE PANPHARMA [Suspect]
     Active Substance: AMOXICILLIN
     Indication: INTERVERTEBRAL DISCITIS
     Dosage: 12 GRAM, QD
     Route: 042
     Dates: start: 20180914

REACTIONS (1)
  - Hepatitis cholestatic [Recovering/Resolving]

NARRATIVE: CASE EVENT DATE: 20180920
